FAERS Safety Report 10698162 (Version 4)
Quarter: 2015Q2

REPORT INFORMATION
  Report Type: Report from Study
  Country: US (occurrence: US)
  Receive Date: 20150108
  Receipt Date: 20150630
  Transmission Date: 20150821
  Serious: Yes (Other)
  Sender: FDA-Public Use
  Company Number: US-SA-2014SA174813

PATIENT
  Age: 33 Year
  Sex: Female

DRUGS (1)
  1. AUBAGIO [Suspect]
     Active Substance: TERIFLUNOMIDE
     Indication: MULTIPLE SCLEROSIS
     Route: 048
     Dates: start: 20141212, end: 201502

REACTIONS (13)
  - Urinary tract infection [Unknown]
  - Dizziness [Unknown]
  - Drug dose omission [Unknown]
  - Gait disturbance [Not Recovered/Not Resolved]
  - Flushing [Unknown]
  - Somnolence [Unknown]
  - Drug ineffective [Unknown]
  - Blood pressure decreased [Unknown]
  - Blood urine present [Unknown]
  - Constipation [Unknown]
  - Condition aggravated [Unknown]
  - Abdominal pain [Unknown]
  - Asthenia [Not Recovered/Not Resolved]

NARRATIVE: CASE EVENT DATE: 201412
